FAERS Safety Report 4323103-9 (Version None)
Quarter: 2004Q1

REPORT INFORMATION
  Report Type: 
  Country: None (occurrence: None)
  Receive Date: 20040323
  Receipt Date: 20040323
  Transmission Date: 20041129
  Serious: Yes (Other)
  Sender: FDA-Public Use
  Company Number: None

PATIENT
  Age: 67 Year
  Sex: Female
  Weight: 63.0953 kg

DRUGS (10)
  1. DEXTROMETHORPHAN GELCAP [Suspect]
     Indication: FATIGUE
     Dosage: 120 MG PO 3X DAY
     Route: 048
     Dates: start: 20040318, end: 20040320
  2. PACLITAXEL [Concomitant]
  3. ZOMETA [Concomitant]
  4. MOTRIN [Concomitant]
  5. AMBIEN [Concomitant]
  6. EPOGEN [Concomitant]
  7. PREVACID [Concomitant]
  8. MULTIVIT [Concomitant]
  9. OXYCODONE [Concomitant]
  10. OXYCONTIN [Concomitant]

REACTIONS (7)
  - ANOREXIA [None]
  - DIARRHOEA [None]
  - DIZZINESS [None]
  - HYPERHIDROSIS [None]
  - NAUSEA [None]
  - SOMNOLENCE [None]
  - VOMITING [None]
